FAERS Safety Report 8274685-6 (Version None)
Quarter: 2012Q2

REPORT INFORMATION
  Report Type: 
  Country: None (occurrence: None)
  Receive Date: 20120411
  Receipt Date: 20120406
  Transmission Date: 20120825
  Serious: Yes (Other)
  Sender: FDA-Public Use
  Company Number: US-TEVA-332188USA

PATIENT
  Sex: Male

DRUGS (1)
  1. TRAZODONE HCL [Suspect]

REACTIONS (6)
  - SENSORY LOSS [None]
  - CONFUSIONAL STATE [None]
  - EYE SWELLING [None]
  - SWOLLEN TONGUE [None]
  - HYPOAESTHESIA [None]
  - DIZZINESS [None]
